FAERS Safety Report 8681139 (Version 2)
Quarter: 2013Q4

REPORT INFORMATION
  Report Type: Spontaneous
  Country: JP (occurrence: JP)
  Receive Date: 20120725
  Receipt Date: 20131031
  Transmission Date: 20140711
  Serious: Yes (Other)
  Sender: FDA-Public Use
  Company Number: JP-MSD-1207JPN007762

PATIENT
  Age: 67 Year
  Sex: Male

DRUGS (4)
  1. REFLEX [Suspect]
     Dosage: UNK
     Route: 048
  2. ARIPIPRAZOLE [Concomitant]
  3. IMIPRAMINE HYDROCHLORIDE [Concomitant]
  4. SULPIRIDE [Concomitant]

REACTIONS (1)
  - Pneumonia aspiration [Unknown]
